FAERS Safety Report 5368984-5 (Version None)
Quarter: 2007Q2

REPORT INFORMATION
  Report Type: 
  Country: None (occurrence: None)
  Receive Date: 20070625
  Receipt Date: 20070208
  Transmission Date: 20071010
  Serious: No
  Sender: FDA-Public Use
  Company Number: US-ASTRAZENECA-2006UW28285

PATIENT
  Age: 75 Year
  Sex: Female
  Weight: 81.6 kg

DRUGS (7)
  1. CRESTOR [Suspect]
     Route: 048
  2. MAXZIDE [Concomitant]
     Indication: BLOOD PRESSURE
  3. UROCIT [Concomitant]
     Indication: NEPHROLITHIASIS
     Route: 048
  4. ACETYLSALICYLIC ACID SRT [Concomitant]
     Dosage: ONE HALF TABLET
     Route: 048
  5. TRIAMTERENE AND HYDROCHLOROTHIAZIDE [Concomitant]
     Dosage: 0NE HALF TABLET
     Route: 048
  6. JANTOVEN [Concomitant]
     Route: 048
  7. ZETIA [Concomitant]
     Route: 048

REACTIONS (6)
  - BLADDER SPASM [None]
  - DYSURIA [None]
  - HEADACHE [None]
  - MUSCLE SWELLING [None]
  - NECK PAIN [None]
  - PAIN IN EXTREMITY [None]
